FAERS Safety Report 13167664 (Version 1)
Quarter: 2017Q1

REPORT INFORMATION
  Report Type: Spontaneous
  Country: US (occurrence: US)
  Receive Date: 20170127
  Receipt Date: 20170127
  Transmission Date: 20170428
  Serious: Yes (Other)
  Sender: FDA-Public Use
  Company Number: None

PATIENT
  Age: 2 Year
  Sex: Male
  Weight: 10.35 kg

DRUGS (1)
  1. BABY TEETHING (HYLAND HOMEOPATHIC) [Suspect]
     Active Substance: HOMEOPATHICS
     Indication: TEETHING
     Dosage: ?          QUANTITY:3 TABLET(S); 3 TIMES A DAY ORAL?
     Route: 048

REACTIONS (3)
  - Vomiting [None]
  - Seizure like phenomena [None]
  - Cold sweat [None]

NARRATIVE: CASE EVENT DATE: 20160519
